FAERS Safety Report 26023133 (Version 1)
Quarter: 2025Q4

REPORT INFORMATION
  Report Type: Spontaneous
  Country: US (occurrence: US)
  Receive Date: 20251110
  Receipt Date: 20251110
  Transmission Date: 20260118
  Serious: No
  Sender: BIOMARIN
  Company Number: US-SA-2025SA323355

PATIENT
  Age: 31 Year
  Sex: Male

DRUGS (1)
  1. LARONIDASE [Suspect]
     Active Substance: LARONIDASE
     Indication: Mucopolysaccharidosis I
     Dosage: 26.1 (TOTAL DOSE ADMINISTERED), QW
     Dates: start: 200402

REACTIONS (1)
  - Respiratory tract infection [Recovering/Resolving]
